FAERS Safety Report 10009661 (Version 2)
Quarter: 2014Q1

REPORT INFORMATION
  Report Type: Spontaneous
  Country: US (occurrence: US)
  Receive Date: 20140312
  Receipt Date: 20140312
  Transmission Date: 20141002
  Serious: No
  Sender: FDA-Public Use
  Company Number: US-INCYTE CORPORATION-2012IN001792

PATIENT
  Age: 74 Year
  Sex: Female

DRUGS (3)
  1. JAKAFI [Suspect]
     Indication: MYELOFIBROSIS
     Dosage: 15 MG, BID
     Route: 048
     Dates: start: 2012
  2. FOSAMAX [Concomitant]
     Dosage: UNK
  3. HYDROXYCHLOROQUINE [Concomitant]
     Dosage: UNK

REACTIONS (1)
  - Pain in extremity [Unknown]
